FAERS Safety Report 5318283-2 (Version None)
Quarter: 2007Q2

REPORT INFORMATION
  Report Type: 
  Country: None (occurrence: None)
  Receive Date: 20070507
  Receipt Date: 20070425
  Transmission Date: 20071010
  Serious: Yes (Other)
  Sender: FDA-Public Use
  Company Number: GB-ELI_LILLY_AND_COMPANY-GB200703001449

PATIENT
  Age: 44 Year
  Sex: Female
  Weight: 63.492 kg

DRUGS (4)
  1. CYMBALTA [Suspect]
     Indication: DEPRESSION
     Dosage: 60 MG, DAILY (1/D)
     Route: 048
     Dates: start: 20070212, end: 20070212
  2. NOVORAPID [Concomitant]
     Indication: DIABETES MELLITUS INSULIN-DEPENDENT
     Dosage: 12 U, 3/D
     Route: 058
     Dates: start: 20060928
  3. LEVEMIR [Concomitant]
     Indication: DIABETES MELLITUS INSULIN-DEPENDENT
     Dosage: 12 U, UNK
     Route: 058
     Dates: start: 20060928
  4. HYPOSTOP [Concomitant]

REACTIONS (5)
  - FEELING ABNORMAL [None]
  - HYPOGLYCAEMIA [None]
  - MYDRIASIS [None]
  - NAUSEA [None]
  - THROAT IRRITATION [None]
